FAERS Safety Report 6920680-6 (Version None)
Quarter: 2010Q3

REPORT INFORMATION
  Report Type: 
  Country: None (occurrence: None)
  Receive Date: 20100812
  Receipt Date: 20100729
  Transmission Date: 20110219
  Serious: Yes (Hospitalization, Other)
  Sender: FDA-Public Use
  Company Number: US-ELI_LILLY_AND_COMPANY-US201008000949

PATIENT
  Sex: Male

DRUGS (8)
  1. FORTEO [Suspect]
     Indication: BONE DISORDER
     Dosage: 20 UG, DAILY (1/D)
  2. ANTIHYPERTENSIVE AGENT [Concomitant]
  3. CARDIZEM [Concomitant]
  4. DIOVAN [Concomitant]
  5. FLOMAX [Concomitant]
  6. CRESTOR [Concomitant]
  7. VITAMIN D [Concomitant]
  8. CLARINEX [Concomitant]

REACTIONS (4)
  - KNEE OPERATION [None]
  - ONYCHOCLASIS [None]
  - POSTOPERATIVE WOUND INFECTION [None]
  - SURGERY [None]
